FAERS Safety Report 9769579 (Version 2)
Quarter: 2013Q4

REPORT INFORMATION
  Report Type: Spontaneous
  Country: US (occurrence: US)
  Receive Date: 20131218
  Receipt Date: 20131218
  Transmission Date: 20140711
  Serious: No
  Sender: FDA-Public Use
  Company Number: US-SHIONOGI, INC-2013000355

PATIENT
  Age: 59 Year
  Sex: Female
  Weight: 75.28 kg

DRUGS (4)
  1. OSPHENA [Suspect]
     Indication: DYSPAREUNIA
     Dosage: 60 MG, QD
     Route: 048
     Dates: start: 20131106, end: 20131119
  2. ESTRACE VAGINAL [Concomitant]
     Indication: PRODUCT USED FOR UNKNOWN INDICATION
     Dosage: UNK
     Route: 067
     Dates: end: 20131106
  3. ATARAX [Concomitant]
     Indication: PRODUCT USED FOR UNKNOWN INDICATION
     Dosage: UNK
     Route: 065
  4. CIPRO [Concomitant]
     Indication: BACTERIAL TEST POSITIVE
     Dosage: UNK
     Route: 065
     Dates: start: 20131112

REACTIONS (13)
  - Chest pain [Recovered/Resolved]
  - Abdominal pain [Unknown]
  - Headache [Unknown]
  - Bladder discomfort [Not Recovered/Not Resolved]
  - Pollakiuria [Not Recovered/Not Resolved]
  - Bacterial test positive [Unknown]
  - Myalgia [Unknown]
  - Vaginal haemorrhage [Not Recovered/Not Resolved]
  - Vulvovaginal pruritus [Not Recovered/Not Resolved]
  - Hyperhidrosis [Recovered/Resolved]
  - Hot flush [Recovered/Resolved]
  - Muscle spasms [Not Recovered/Not Resolved]
  - Vaginal discharge [None]
